FAERS Safety Report 10428902 (Version 1)
Quarter: 2014Q3

REPORT INFORMATION
  Report Type: Spontaneous
  Country: GB (occurrence: GB)
  Receive Date: 20140904
  Receipt Date: 20140904
  Transmission Date: 20150326
  Serious: Yes (Hospitalization, Other)
  Sender: FDA-Public Use
  Company Number: GB-AUROBINDO-AUR-APL-2014-09158

PATIENT
  Age: 73 Year
  Sex: Female
  Weight: 83.46 kg

DRUGS (17)
  1. BUDESONIDE. [Concomitant]
     Active Substance: BUDESONIDE
     Indication: PRODUCT USED FOR UNKNOWN INDICATION
     Dosage: 100 MCG, TWO TIMES A DAY
  2. CARBOMER [Concomitant]
     Active Substance: CARBOMER
     Indication: PRODUCT USED FOR UNKNOWN INDICATION
     Dosage: 0.2 %, UNK
     Route: 047
  3. EZETIMIBE. [Concomitant]
     Active Substance: EZETIMIBE
     Indication: PRODUCT USED FOR UNKNOWN INDICATION
     Dosage: 10 MG, ONCE A DAY
     Route: 048
  4. LYRICA [Concomitant]
     Active Substance: PREGABALIN
     Indication: PRODUCT USED FOR UNKNOWN INDICATION
     Dosage: 50 MG, UNK
     Route: 065
  5. GTN [Concomitant]
     Active Substance: NITROGLYCERIN
     Indication: CHEST PAIN
     Dosage: 1 DF, AS NECESSARY
     Route: 060
  6. PREDNISOLONE. [Concomitant]
     Active Substance: PREDNISOLONE
     Indication: PRODUCT USED FOR UNKNOWN INDICATION
     Dosage: 15 MG, ONCE A DAY
     Route: 065
  7. SALBUTAMOL [Concomitant]
     Active Substance: ALBUTEROL
     Indication: PRODUCT USED FOR UNKNOWN INDICATION
     Dosage: UNK, AS NECESSARY
  8. DIPYRIDAMOLE. [Concomitant]
     Active Substance: DIPYRIDAMOLE
     Indication: PRODUCT USED FOR UNKNOWN INDICATION
     Dosage: 200 MG, TWO TIMES A DAY
     Route: 048
  9. REMEDEINE                          /00138301/ [Concomitant]
     Indication: PRODUCT USED FOR UNKNOWN INDICATION
     Dosage: 2 DF, 4 TIMES
     Route: 048
  10. TILDIEM [Concomitant]
     Active Substance: DILTIAZEM HYDROCHLORIDE
     Indication: PRODUCT USED FOR UNKNOWN INDICATION
     Dosage: 300 MG, ONCE A DAY
     Route: 048
  11. SIMVASTATIN. [Suspect]
     Active Substance: SIMVASTATIN
     Indication: PRODUCT USED FOR UNKNOWN INDICATION
     Dosage: 40 MG, ONCE A DAY
     Route: 048
  12. CLOPIDOGREL [Concomitant]
     Active Substance: CLOPIDOGREL BISULFATE
     Indication: PRODUCT USED FOR UNKNOWN INDICATION
     Dosage: 75 MG, ONCE A DAY
     Route: 048
  13. RAMIPRIL. [Concomitant]
     Active Substance: RAMIPRIL
     Indication: PRODUCT USED FOR UNKNOWN INDICATION
     Dosage: 2.5 MG, ONCE A DAY
     Route: 048
  14. FLUOXETINE [Concomitant]
     Active Substance: FLUOXETINE\FLUOXETINE HYDROCHLORIDE
     Indication: PRODUCT USED FOR UNKNOWN INDICATION
     Dosage: 20 MG, TWO TIMES A DAY
     Route: 048
  15. METHOTREXATE [Concomitant]
     Active Substance: METHOTREXATE
     Indication: PRODUCT USED FOR UNKNOWN INDICATION
     Dosage: UNK
     Route: 065
  16. NICORANDIL [Concomitant]
     Active Substance: NICORANDIL
     Indication: PRODUCT USED FOR UNKNOWN INDICATION
     Dosage: 5 MG, UNK, (2/1)
     Route: 048
  17. PANTOPRAZOLE [Concomitant]
     Active Substance: PANTOPRAZOLE SODIUM
     Indication: PRODUCT USED FOR UNKNOWN INDICATION
     Dosage: 40 MG, ONCE A DAY
     Route: 048

REACTIONS (12)
  - Dry eye [Recovering/Resolving]
  - Pain in extremity [Recovering/Resolving]
  - Nasal dryness [Recovering/Resolving]
  - Pruritus [Recovering/Resolving]
  - Malaise [Recovering/Resolving]
  - Hyperhidrosis [Recovering/Resolving]
  - Mood swings [Recovering/Resolving]
  - Feeling abnormal [Recovering/Resolving]
  - Tremor [Recovering/Resolving]
  - Headache [Recovering/Resolving]
  - Arthralgia [Recovering/Resolving]
  - Dry mouth [Recovering/Resolving]
